FAERS Safety Report 7084956-7 (Version None)
Quarter: 2010Q4

REPORT INFORMATION
  Report Type: 
  Country: None (occurrence: None)
  Receive Date: 20101105
  Receipt Date: 20101028
  Transmission Date: 20110411
  Serious: Yes (Other)
  Sender: FDA-Public Use
  Company Number: US-BAYER-201038783NA

PATIENT
  Age: 0 Hour
  Sex: Male
  Weight: 2.78 kg

DRUGS (1)
  1. MIRENA [Suspect]
     Indication: UNEVALUABLE EVENT
     Route: 064
     Dates: start: 20031201

REACTIONS (2)
  - APGAR SCORE LOW [None]
  - PREMATURE BABY [None]
